FAERS Safety Report 9781627 (Version 2)
Quarter: 2013Q4

REPORT INFORMATION
  Report Type: Report from Study
  Country: CA (occurrence: CA)
  Receive Date: 20131224
  Receipt Date: 20131224
  Transmission Date: 20140711
  Serious: Yes (Other)
  Sender: FDA-Public Use
  Company Number: CA-JNJFOC-20130711090

PATIENT
  Age: 80 Year
  Sex: Male
  Weight: 69.5 kg

DRUGS (2)
  1. REMICADE [Suspect]
     Indication: PSORIASIS
     Route: 042
     Dates: start: 20110131, end: 20130521
  2. REMICADE [Suspect]
     Indication: PSORIASIS
     Route: 042

REACTIONS (4)
  - Lung infection [Unknown]
  - Lung disorder [Unknown]
  - Weight decreased [Unknown]
  - Influenza [Unknown]
